FAERS Safety Report 8073275-8 (Version None)
Quarter: 2012Q1

REPORT INFORMATION
  Report Type: 
  Country: None (occurrence: None)
  Receive Date: 20120123
  Receipt Date: 20120123
  Transmission Date: 20120608
  Serious: Yes (Hospitalization)
  Sender: FDA-Public Use
  Company Number: None

PATIENT
  Sex: Female
  Weight: 92.8 kg

DRUGS (24)
  1. ZOMETA [Suspect]
     Dosage: 4 MG
  2. ASPIRIN [Concomitant]
  3. MULTI-VITAMIN [Concomitant]
  4. REQUIP [Concomitant]
  5. ALPRAZOLAM [Concomitant]
  6. GLUCOSAMINE CHONDROITIN [Concomitant]
  7. NEXIUM [Concomitant]
  8. PRISTIQ [Concomitant]
  9. VYTORIN [Concomitant]
  10. BYSTOLIC [Concomitant]
  11. COMBIGAN 1 [Concomitant]
  12. LEVOTHROID [Concomitant]
  13. ONDANSETRON [Concomitant]
  14. CALCIUM + D [Concomitant]
  15. IBUPROFEN [Concomitant]
  16. LOVAZA [Concomitant]
  17. XELODA [Concomitant]
  18. ALIGN ONE [Concomitant]
  19. NEFAZODONE HCL [Concomitant]
  20. CALCIUM CARBONATE [Suspect]
     Dosage: 28000 MG
  21. PROVIGIL [Concomitant]
  22. VALTURNA [Concomitant]
  23. VITAMIN D2 [Suspect]
     Dosage: 28000 IU
  24. OXYCODONE HCL [Concomitant]

REACTIONS (7)
  - PALMAR-PLANTAR ERYTHRODYSAESTHESIA SYNDROME [None]
  - BLOOD CALCIUM DECREASED [None]
  - BLOOD ALBUMIN DECREASED [None]
  - PROTEIN TOTAL DECREASED [None]
  - DIARRHOEA [None]
  - DISEASE PROGRESSION [None]
  - BLOOD POTASSIUM DECREASED [None]
